FAERS Safety Report 4381225-0 (Version None)
Quarter: 2004Q2

REPORT INFORMATION
  Report Type: 
  Country: None (occurrence: None)
  Receive Date: 20040616
  Receipt Date: 20040604
  Transmission Date: 20050107
  Serious: Yes (Death, Hospitalization)
  Sender: FDA-Public Use
  Company Number: US_0403101897

PATIENT
  Age: 50 Year
  Sex: Female

DRUGS (47)
  1. ZYPREXA [Suspect]
     Indication: SCHIZOAFFECTIVE DISORDER
     Dosage: 30 MG DAY
     Dates: start: 20000101
  2. MELLARIL [Concomitant]
  3. ADVAIR [Concomitant]
  4. CLONAZEPAM [Concomitant]
  5. PHENYTOIN [Concomitant]
  6. AMBIEN [Concomitant]
  7. PROTONIX [Concomitant]
  8. COMBIVENT [Concomitant]
  9. METHOCARBAMOL [Concomitant]
  10. HYDROCODONE W/APAP [Concomitant]
  11. FAMOTIDINE [Concomitant]
  12. ZANAFLEX [Concomitant]
  13. DIAZEPAM [Concomitant]
  14. BELLADONNA ALKALOIDS [Concomitant]
  15. CARISOPRODOL [Concomitant]
  16. PROMETHAZINE [Concomitant]
  17. ATROPINE W/DIPHENOXYLATE [Concomitant]
  18. SULFAMETHOXAZOLE + TRIMETHOPRIM [Concomitant]
  19. SKELAXIN [Concomitant]
  20. AMOXICILLIN [Concomitant]
  21. PROPOXYPHENE [Concomitant]
  22. TETRACYCLINE [Concomitant]
  23. TYLENOL W/ CODEINE NO. 3 [Concomitant]
  24. METOCLOPRAMIDE [Concomitant]
  25. NEURONTIN [Concomitant]
  26. TEMAZEPAM [Concomitant]
  27. ZITHROMAX [Concomitant]
  28. ALBUTEROL [Concomitant]
  29. TEQUIN [Concomitant]
  30. WELLBUTRIN SR [Concomitant]
  31. CHLORPROMAZINE [Concomitant]
  32. NICOTROL (NICOTINE) [Concomitant]
  33. ULTRAM [Concomitant]
  34. LORAZEPAM [Concomitant]
  35. PENICILLIN-VK [Concomitant]
  36. TRAZADONE (TRAZODONE) [Concomitant]
  37. SEROQUEL [Concomitant]
  38. KETOROLAC TROMETHAMINE [Concomitant]
  39. DEPAKOTE [Concomitant]
  40. DIFLUCAN [Concomitant]
  41. PREMPHASE 14/14 [Concomitant]
  42. HYOSCYAMINE [Concomitant]
  43. DICYCLOMINE (DICYCLOVERINE) [Concomitant]
  44. TIZANIDINE HCL [Concomitant]
  45. VIOXX [Concomitant]
  46. KLONOPIN [Concomitant]
  47. METAMUCIL-2 [Concomitant]

REACTIONS (13)
  - ABNORMAL BEHAVIOUR [None]
  - ANGER [None]
  - ANXIETY [None]
  - COMPLETED SUICIDE [None]
  - CONVULSION [None]
  - DRUG LEVEL INCREASED [None]
  - DRUG WITHDRAWAL SYNDROME [None]
  - HALLUCINATION, AUDITORY [None]
  - HOMICIDAL IDEATION [None]
  - ILLUSION [None]
  - PERSONALITY CHANGE [None]
  - PRESCRIBED OVERDOSE [None]
  - SUICIDAL IDEATION [None]
